FAERS Safety Report 15315558 (Version 3)
Quarter: 2020Q1

REPORT INFORMATION
  Report Type: Spontaneous
  Country: US (occurrence: US)
  Receive Date: 20180824
  Receipt Date: 20200228
  Transmission Date: 20200409
  Serious: Yes (Other)
  Sender: FDA-Public Use
  Company Number: US-IPSEN BIOPHARMACEUTICALS, INC.-2018-12259

PATIENT
  Age: 65 Year
  Sex: Female
  Weight: 59.4 kg

DRUGS (9)
  1. SOMATULINE AUTOGEL [Suspect]
     Active Substance: LANREOTIDE ACETATE
     Indication: OFF LABEL USE
  2. CREON [Concomitant]
     Active Substance: PANCRELIPASE AMYLASE\PANCRELIPASE LIPASE\PANCRELIPASE PROTEASE
     Indication: DIARRHOEA
  3. SOMATULINE AUTOGEL [Suspect]
     Active Substance: LANREOTIDE ACETATE
     Indication: CARCINOID TUMOUR OF THE CAECUM
  4. XERMELO [Concomitant]
     Active Substance: TELOTRISTAT ETHYL
     Indication: PRODUCT USED FOR UNKNOWN INDICATION
     Route: 048
  5. SOMATULINE AUTOGEL [Suspect]
     Active Substance: LANREOTIDE ACETATE
     Indication: CARCINOID TUMOUR
     Dosage: 120 MG
     Route: 058
     Dates: start: 20180525, end: 20180817
  6. SOMATULINE AUTOGEL [Suspect]
     Active Substance: LANREOTIDE ACETATE
     Indication: HEPATIC CANCER
  7. PULMICORT FLEXHALER [Concomitant]
     Active Substance: BUDESONIDE
     Dosage: INHALE TWO PUFFS DAILY, RINSE MOUTH AFTER USE
     Route: 055
  8. VITAMIN D3 [Concomitant]
     Active Substance: CHOLECALCIFEROL
     Route: 048
  9. SHINGRIX [Concomitant]
     Active Substance: RECOMBINANT VARICELLA ZOSTER VIRUS (VZV) GLYCOPROTEIN E
     Dosage: INJECT 0.5 ML INTO APPROPRIATE MUSCLE, GIVE FIRST DOSE DAY ONE, REPEAT SECOND DOSE 2-6 MONTHS LATER

REACTIONS (9)
  - Ear pain [Unknown]
  - Blood uric acid increased [Unknown]
  - Pericardial rub [Unknown]
  - Hernia [Unknown]
  - Glomerular filtration rate decreased [Unknown]
  - Platelet count decreased [Not Recovered/Not Resolved]
  - Cardiac murmur [Unknown]
  - Off label use [Unknown]
  - Bone disorder [Unknown]

NARRATIVE: CASE EVENT DATE: 201807
